FAERS Safety Report 7632554-6 (Version None)
Quarter: 2011Q3

REPORT INFORMATION
  Report Type: 
  Country: None (occurrence: None)
  Receive Date: 20110725
  Receipt Date: 20101012
  Transmission Date: 20111222
  Serious: No
  Sender: FDA-Public Use
  Company Number: US-BRISTOL-MYERS SQUIBB COMPANY-15326416

PATIENT
  Age: 87 Year
  Sex: Male

DRUGS (6)
  1. VITAMIN D [Concomitant]
  2. TRAZODONE HCL [Concomitant]
  3. LOVAZA [Concomitant]
  4. SIMVASTATIN [Concomitant]
  5. UROXATRAL [Concomitant]
  6. COUMADIN [Suspect]
     Indication: ATRIAL FIBRILLATION
     Dosage: DOSAGE:ALTERNATING WITH 2.5MG
     Dates: start: 20100519

REACTIONS (1)
  - CONJUNCTIVAL HAEMORRHAGE [None]
